FAERS Safety Report 8571414-3 (Version None)
Quarter: 2012Q3

REPORT INFORMATION
  Report Type: 
  Country: None (occurrence: None)
  Receive Date: 20120806
  Receipt Date: 20120726
  Transmission Date: 20120928
  Serious: Yes (Other)
  Sender: FDA-Public Use
  Company Number: CA-JNJFOC-20120406590

PATIENT
  Sex: Female
  Weight: 67 kg

DRUGS (1)
  1. REMICADE [Suspect]
     Indication: CROHN'S DISEASE
     Route: 042
     Dates: start: 20081021

REACTIONS (6)
  - BODY TEMPERATURE INCREASED [None]
  - GASTROINTESTINAL INFECTION [None]
  - DENTAL OPERATION [None]
  - HYPERSENSITIVITY [None]
  - CROHN'S DISEASE [None]
  - NASOPHARYNGITIS [None]
